FAERS Safety Report 17544133 (Version 1)
Quarter: 2020Q1

REPORT INFORMATION
  Report Type: Spontaneous
  Country: US (occurrence: US)
  Receive Date: 20200306
  Receipt Date: 20200306
  Transmission Date: 20200409
  Serious: No
  Sender: FDA-Public Use
  Company Number: None

PATIENT
  Age: 18 Year
  Sex: Male

DRUGS (1)
  1. TOBRAMYCIN NEB 300MG/5ML [Suspect]
     Active Substance: TOBRAMYCIN
     Route: 055
     Dates: start: 202002

REACTIONS (4)
  - Pyrexia [None]
  - Product dose omission [None]
  - Influenza [None]
  - Oropharyngeal pain [None]

NARRATIVE: CASE EVENT DATE: 20200306
